FAERS Safety Report 8104536 (Version 8)
Quarter: 2020Q1

REPORT INFORMATION
  Report Type: Report from Study
  Country: JP (occurrence: JP)
  Receive Date: 20110824
  Receipt Date: 20200117
  Transmission Date: 20200409
  Serious: Yes (Hospitalization, Other)
  Sender: FDA-Public Use
  Company Number: JP-CELGENEUS-087-21880-11081323

PATIENT
  Age: 68 Year
  Sex: Female

DRUGS (6)
  1. PLATELETS [Concomitant]
     Active Substance: HUMAN PLATELET, ALLOGENIC
     Indication: PRODUCT USED FOR UNKNOWN INDICATION
     Route: 041
  2. REVLIMID [Suspect]
     Active Substance: LENALIDOMIDE
     Dosage: 10 MG
     Route: 048
     Dates: start: 20101130, end: 20101201
  3. DEXAMETHASONE. [Concomitant]
     Active Substance: DEXAMETHASONE
     Indication: PLASMA CELL MYELOMA
     Dosage: 80 MG
     Route: 048
     Dates: start: 20101102, end: 20101103
  4. NEU-UP [Concomitant]
     Active Substance: UNSPECIFIED INGREDIENT
     Indication: TUMOUR LYSIS SYNDROME
     Route: 065
     Dates: start: 20111203
  5. DEXAMETHASONE. [Concomitant]
     Active Substance: DEXAMETHASONE
     Dosage: 80 MG
     Route: 048
     Dates: start: 20101130, end: 20101201
  6. REVLIMID [Suspect]
     Active Substance: LENALIDOMIDE
     Indication: PLASMA CELL MYELOMA
     Dosage: 10 MG
     Route: 048
     Dates: start: 20101102, end: 20101103

REACTIONS (6)
  - Delirium [Recovered/Resolved]
  - Tumour lysis syndrome [Recovered/Resolved]
  - Disseminated intravascular coagulation [Recovering/Resolving]
  - Tumour lysis syndrome [Recovered/Resolved]
  - Platelet count decreased [Recovering/Resolving]
  - Neutrophil count decreased [Recovering/Resolving]

NARRATIVE: CASE EVENT DATE: 20101104
